FAERS Safety Report 7288770-9 (Version None)
Quarter: 2011Q1

REPORT INFORMATION
  Report Type: 
  Country: None (occurrence: None)
  Receive Date: 20110211
  Receipt Date: 20110209
  Transmission Date: 20110831
  Serious: No
  Sender: FDA-Public Use
  Company Number: US-TEVA-266559USA

PATIENT
  Sex: Male
  Weight: 102.15 kg

DRUGS (5)
  1. ALBUTEROL [Concomitant]
  2. CLONAZEPAM [Concomitant]
  3. BYSTOLIC [Concomitant]
  4. ALBUTEROL SULFATE AUTOHALER [Suspect]
     Indication: ASTHMA
     Route: 055
     Dates: start: 20110119, end: 20110209
  5. ACETYLSALICYLIC ACID [Concomitant]

REACTIONS (1)
  - CHEST PAIN [None]
